FAERS Safety Report 5528608-0 (Version None)
Quarter: 2007Q4

REPORT INFORMATION
  Report Type: 
  Country: None (occurrence: None)
  Receive Date: 20071126
  Receipt Date: 20071030
  Transmission Date: 20080405
  Serious: Yes (Hospitalization)
  Sender: FDA-Public Use
  Company Number: M-07-0971

PATIENT
  Age: 60 Year
  Sex: Male
  Weight: 78.9259 kg

DRUGS (10)
  1. AMIODARONE HCL [Suspect]
     Indication: ATRIAL FIBRILLATION
     Dosage: 200 MG, BID, PO
     Route: 048
     Dates: start: 20030401, end: 20031001
  2. AMIODARONE HCL [Suspect]
     Indication: ATRIAL FIBRILLATION
     Dosage: 200 MG, TID, PO
     Route: 048
     Dates: start: 20030319, end: 20030401
  3. ZOCOR [Concomitant]
  4. LISINOPRIL [Concomitant]
  5. DIGOXIN [Concomitant]
  6. ATENOLOL [Concomitant]
  7. ASPIRIN [Concomitant]
  8. NITROGLYCERIN [Concomitant]
  9. PAXIL [Concomitant]
  10. ATIVAN [Concomitant]

REACTIONS (7)
  - BLOOD CULTURE POSITIVE [None]
  - CARDIAC FAILURE CONGESTIVE [None]
  - CHILLS [None]
  - DRUG RESISTANCE [None]
  - DRUG TOXICITY [None]
  - LUNG INFILTRATION [None]
  - STAPHYLOCOCCAL INFECTION [None]
